FAERS Safety Report 9109941 (Version 1)
Quarter: 2013Q1

REPORT INFORMATION
  Report Type: Report from Study
  Country: US (occurrence: US)
  Receive Date: 20130222
  Receipt Date: 20130222
  Transmission Date: 20140127
  Serious: Yes (Hospitalization)
  Sender: FDA-Public Use
  Company Number: US-PFIZER INC-2013045220

PATIENT
  Age: 66 Year
  Sex: Male
  Weight: 76.3 kg

DRUGS (6)
  1. AXITINIB [Suspect]
     Indication: RENAL CELL CARCINOMA
     Dosage: 3 MG, UNK
     Route: 048
     Dates: start: 20100120, end: 20130130
  2. NORVASC [Concomitant]
     Indication: HYPERTENSION
     Dosage: UNK
     Dates: start: 20120504
  3. LOPRESSOR [Concomitant]
     Indication: HYPERTENSION
     Dosage: UNK
     Dates: start: 20100210
  4. CHLORTHALIDONE [Concomitant]
     Indication: HYPERTENSION
     Dosage: UNK
     Dates: start: 20100304
  5. XANAX [Concomitant]
     Dosage: UNK
     Dates: start: 2009
  6. ATORVASTATIN [Concomitant]
     Indication: HYPERLIPIDAEMIA
     Dosage: UNK
     Dates: start: 20121029

REACTIONS (1)
  - Chest pain [Recovering/Resolving]
